FAERS Safety Report 4453301-5 (Version None)
Quarter: 2004Q3

REPORT INFORMATION
  Report Type: 
  Country: None (occurrence: None)
  Receive Date: 20040920
  Receipt Date: 20040914
  Transmission Date: 20050211
  Serious: Yes (Hospitalization)
  Sender: FDA-Public Use
  Company Number: US-MERCK-0409USA01256

PATIENT
  Age: 5 Year
  Sex: Male

DRUGS (1)
  1. CRIXIVAN [Suspect]
     Route: 048
     Dates: start: 19990101, end: 20040501

REACTIONS (2)
  - PNEUMONIA [None]
  - RENAL FAILURE [None]
